FAERS Safety Report 7153380-0 (Version None)
Quarter: 2010Q4

REPORT INFORMATION
  Report Type: 
  Country: None (occurrence: None)
  Receive Date: 20101213
  Receipt Date: 20101207
  Transmission Date: 20110411
  Serious: Yes (Other)
  Sender: FDA-Public Use
  Company Number: FI-JNJFOC-20101203002

PATIENT
  Age: 38 Year
  Sex: Female

DRUGS (1)
  1. TAVANIC [Suspect]
     Indication: SKIN INFECTION
     Route: 048

REACTIONS (4)
  - MUSCLE SPASMS [None]
  - MUSCULOSKELETAL STIFFNESS [None]
  - PAIN IN EXTREMITY [None]
  - TENDON RUPTURE [None]
